FAERS Safety Report 19272206 (Version 2)
Quarter: 2021Q2

REPORT INFORMATION
  Report Type: Spontaneous
  Country: PH (occurrence: PH)
  Receive Date: 20210519
  Receipt Date: 20210604
  Transmission Date: 20210717
  Serious: Yes (Hospitalization, Other)
  Sender: FDA-Public Use
  Company Number: PH-B.I. PHARMACEUTICALS,INC./RIDGEFIELD-2021-BI-103062

PATIENT
  Age: 48 Year
  Sex: Female

DRUGS (2)
  1. GLIMEPIRIDE. [Suspect]
     Active Substance: GLIMEPIRIDE
     Indication: DIABETES MELLITUS
     Route: 065
  2. JARDIANCE DUO [Suspect]
     Active Substance: EMPAGLIFLOZIN\METFORMIN HYDROCHLORIDE
     Indication: TYPE 2 DIABETES MELLITUS
     Dosage: 12.5/500 MG BID
     Route: 065
     Dates: start: 2020

REACTIONS (7)
  - Hypokalaemia [Recovered/Resolved]
  - Blood creatinine increased [Recovered/Resolved]
  - Sepsis [Recovered/Resolved]
  - Subcutaneous abscess [Recovered/Resolved]
  - Euglycaemic diabetic ketoacidosis [Recovered/Resolved]
  - Diabetes mellitus inadequate control [Recovered/Resolved]
  - Dyspnoea [Recovered/Resolved]

NARRATIVE: CASE EVENT DATE: 20210511
